FAERS Safety Report 7117868-0 (Version None)
Quarter: 2010Q4

REPORT INFORMATION
  Report Type: 
  Country: None (occurrence: None)
  Receive Date: 20101123
  Receipt Date: 20101111
  Transmission Date: 20110411
  Serious: Yes (Other)
  Sender: FDA-Public Use
  Company Number: US-RB-015159-10

PATIENT
  Age: 24 Year
  Sex: Male

DRUGS (2)
  1. MUCINEX DM [Suspect]
     Indication: NASOPHARYNGITIS
     Route: 048
  2. MUCINEX DM [Suspect]
     Indication: RESPIRATORY TRACT CONGESTION
     Route: 048

REACTIONS (1)
  - EPISTAXIS [None]
